FAERS Safety Report 5148340-5 (Version None)
Quarter: 2006Q4

REPORT INFORMATION
  Report Type: 
  Country: None (occurrence: None)
  Receive Date: 20061106
  Receipt Date: 20061027
  Transmission Date: 20070319
  Serious: Yes (Hospitalization)
  Sender: FDA-Public Use
  Company Number: 2006132014

PATIENT
  Age: 21 Year
  Sex: Male

DRUGS (2)
  1. ZOLOFT [Suspect]
     Indication: PAIN
     Dosage: 100 MG ORAL
     Route: 048
     Dates: end: 20060725
  2. TRAMADOL HCL [Suspect]
     Indication: PAIN
     Dosage: 200 MG ORAL
     Route: 048
     Dates: end: 20060725

REACTIONS (2)
  - DRUG INTERACTION [None]
  - SEROTONIN SYNDROME [None]
